FAERS Safety Report 7957434-8 (Version None)
Quarter: 2011Q4

REPORT INFORMATION
  Report Type: 
  Country: None (occurrence: None)
  Receive Date: 20111205
  Receipt Date: 20111130
  Transmission Date: 20120403
  Serious: Yes (Other)
  Sender: FDA-Public Use
  Company Number: US-PFIZER INC-2011197848

PATIENT
  Sex: Male

DRUGS (32)
  1. ZYPREXA [Suspect]
     Dosage: UNK
  2. WELLBUTRIN [Suspect]
     Dosage: UNK
  3. TRAZODONE HCL [Suspect]
     Indication: PAIN
  4. CYMBALTA [Suspect]
     Indication: PAIN
  5. SKELAXIN [Suspect]
     Dosage: UNK
  6. EFFEXOR [Suspect]
     Dosage: 37.5 MG, UNK
  7. SOMA [Suspect]
     Dosage: UNK
  8. RISPERDAL [Suspect]
     Dosage: UNK
     Dates: start: 20070101
  9. TEGRETOL [Suspect]
     Dosage: UNK
  10. VALIUM [Suspect]
     Indication: HYPOTONIA
  11. TRAZODONE HCL [Suspect]
     Indication: DEPRESSION
  12. PAMELOR [Suspect]
  13. MIRTAZAPINE [Suspect]
     Dosage: UNK
     Dates: start: 20070101
  14. CELEBREX [Suspect]
     Dosage: UNK
  15. ZOMIG [Suspect]
     Indication: HEADACHE
     Dosage: UNK
  16. PAXIL [Suspect]
     Dosage: UNK
  17. GEODON [Suspect]
     Dosage: UNK
  18. LITHIUM [Suspect]
     Dosage: UNK
     Dates: start: 20070101
  19. KLONOPIN [Suspect]
     Dosage: UNK
  20. SEROQUEL [Suspect]
     Dosage: UNK
     Dates: start: 20070101
  21. BUSPAR [Suspect]
     Dosage: UNK
  22. VALIUM [Suspect]
     Indication: PAIN
     Dosage: UNK
  23. ZOLOFT [Suspect]
     Dosage: UNK
  24. LEXAPRO [Suspect]
     Dosage: UNK
  25. ELAVIL [Suspect]
     Dosage: UNK
  26. IMITREX [Suspect]
     Indication: HEADACHE
     Dosage: UNK
  27. RITALIN [Suspect]
     Indication: HEADACHE
  28. EFFEXOR XR [Suspect]
     Dosage: UNK
  29. DEPAKOTE [Suspect]
     Indication: HEADACHE
     Dosage: UNK
  30. LAMICTAL [Suspect]
     Dosage: UNK
  31. VALIUM [Suspect]
     Indication: ANXIETY
  32. CYMBALTA [Suspect]
     Indication: DEPRESSION

REACTIONS (23)
  - BREAST ENLARGEMENT [None]
  - RASH [None]
  - RECTAL HAEMORRHAGE [None]
  - DEAFNESS [None]
  - GASTRIC ULCER [None]
  - AGGRESSION [None]
  - DEPENDENCE [None]
  - MEMORY IMPAIRMENT [None]
  - ERECTION INCREASED [None]
  - FATIGUE [None]
  - SUICIDAL IDEATION [None]
  - DRUG EFFECT INCREASED [None]
  - CONDITION AGGRAVATED [None]
  - ANGER [None]
  - MOOD SWINGS [None]
  - WEIGHT INCREASED [None]
  - CONSTIPATION [None]
  - EAR DISORDER [None]
  - MUSCLE SPASMS [None]
  - INFLUENZA LIKE ILLNESS [None]
  - INSOMNIA [None]
  - DRUG INEFFECTIVE [None]
  - DISTURBANCE IN ATTENTION [None]
